FAERS Safety Report 4340673-5 (Version None)
Quarter: 2004Q2

REPORT INFORMATION
  Report Type: 
  Country: None (occurrence: None)
  Receive Date: 20040414
  Receipt Date: 20040405
  Transmission Date: 20050107
  Serious: Yes (Other)
  Sender: FDA-Public Use
  Company Number: HQWYE370006APR04

PATIENT
  Age: 61 Year
  Sex: Male
  Weight: 158.9 kg

DRUGS (6)
  1. PROTONIX [Suspect]
     Indication: ASPIRATION
     Dosage: SEE I MAGE
     Route: 048
     Dates: start: 20030101, end: 20040101
  2. PROTONIX [Suspect]
     Indication: VOMITING
     Dosage: SEE I MAGE
     Route: 048
     Dates: start: 20030101, end: 20040101
  3. PROTONIX [Suspect]
     Indication: ASPIRATION
     Dosage: SEE I MAGE
     Route: 048
     Dates: start: 20040101
  4. PROTONIX [Suspect]
     Indication: VOMITING
     Dosage: SEE I MAGE
     Route: 048
     Dates: start: 20040101
  5. LEVAQUIN [Concomitant]
  6. UNSPECIFIED ANTIHYPERTENSIVE AGENT (UNSPECIFIED ANTIHYPERTENSIVE AGENT [Concomitant]

REACTIONS (4)
  - ASPIRATION [None]
  - DYSPEPSIA [None]
  - PROSTATE CANCER [None]
  - VOMITING [None]
